FAERS Safety Report 9216348 (Version 1)
Quarter: 2013Q2

REPORT INFORMATION
  Report Type: Report from Study
  Country: CA (occurrence: CA)
  Receive Date: 20130408
  Receipt Date: 20130408
  Transmission Date: 20140414
  Serious: Yes (Other)
  Sender: FDA-Public Use
  Company Number: CA-JNJFOC-20130400552

PATIENT
  Sex: Male
  Weight: 33.57 kg

DRUGS (1)
  1. REMICADE [Suspect]
     Indication: CROHN^S DISEASE
     Route: 042
     Dates: end: 201212

REACTIONS (4)
  - Growth retardation [Unknown]
  - Weight gain poor [Unknown]
  - Abasia [Unknown]
  - Drug ineffective [Unknown]
